FAERS Safety Report 25110779 (Version 1)
Quarter: 2025Q1

REPORT INFORMATION
  Report Type: Spontaneous
  Country: ES (occurrence: None)
  Receive Date: 20250324
  Receipt Date: 20250324
  Transmission Date: 20250408
  Serious: Yes (Other)
  Sender: NATCO PHARMA
  Company Number: ES-NATCOUSA-2025-NATCOUSA-000267

PATIENT
  Age: 73 Year
  Sex: Female

DRUGS (1)
  1. LETROZOLE [Suspect]
     Active Substance: LETROZOLE
     Indication: Breast cancer
     Route: 065

REACTIONS (1)
  - Organising pneumonia [Recovered/Resolved]
